FAERS Safety Report 8602436-1 (Version None)
Quarter: 2012Q3

REPORT INFORMATION
  Report Type: 
  Country: None (occurrence: None)
  Receive Date: 20120817
  Receipt Date: 20120809
  Transmission Date: 20120928
  Serious: Yes (Hospitalization)
  Sender: FDA-Public Use
  Company Number: CA-ROCHE-1101057

PATIENT
  Sex: Male
  Weight: 91.254 kg

DRUGS (6)
  1. AVASTIN [Suspect]
     Indication: GLIOBLASTOMA
     Route: 042
     Dates: start: 20120726
  2. KEPPRA [Concomitant]
  3. DILANTIN [Concomitant]
  4. ZANTAC [Concomitant]
  5. DECADRON PHOSPHATE [Concomitant]
  6. FLUTICASONE PROPIONATE [Concomitant]

REACTIONS (3)
  - AGITATION [None]
  - RESTLESSNESS [None]
  - GAIT DISTURBANCE [None]
